FAERS Safety Report 9627703 (Version 1)
Quarter: 2013Q4

REPORT INFORMATION
  Report Type: Not Available
  Country: US (occurrence: US)
  Receive Date: 20131016
  Receipt Date: 20131016
  Transmission Date: 20140711
  Serious: No
  Sender: FDA-Public Use
  Company Number: US-LUNDBECK-DKLU1091282

PATIENT
  Sex: Female

DRUGS (2)
  1. SABRIL (TABLET) [Suspect]
     Indication: COMPLEX PARTIAL SEIZURES
     Route: 048
     Dates: start: 20130409
  2. SABRIL (TABLET) [Suspect]
     Route: 048
     Dates: start: 201305

REACTIONS (1)
  - Drug dose omission [Unknown]
